FAERS Safety Report 12887271 (Version 6)
Quarter: 2017Q1

REPORT INFORMATION
  Report Type: Report from Study
  Country: FR (occurrence: FR)
  Receive Date: 20161026
  Receipt Date: 20170209
  Transmission Date: 20170428
  Serious: Yes (Hospitalization)
  Sender: FDA-Public Use
  Company Number: FR-ROCHE-1845536

PATIENT
  Age: 64 Year
  Sex: Male
  Weight: 71 kg

DRUGS (24)
  1. PANTOPRAZOLE [Concomitant]
     Active Substance: PANTOPRAZOLE SODIUM
     Indication: GASTRITIS
     Route: 065
     Dates: start: 20160902
  2. FASTURTEC [Concomitant]
     Active Substance: RASBURICASE
     Indication: TUMOUR LYSIS SYNDROME
     Route: 065
     Dates: start: 20160922, end: 20160922
  3. VENETOCLAX [Suspect]
     Active Substance: VENETOCLAX
     Indication: B-CELL LYMPHOMA
     Dosage: DATE OF MOST RECENT DOSE: 20/OCT/2016
     Route: 048
     Dates: start: 20160925
  4. CYCLOPHOSPHAMIDE. [Suspect]
     Active Substance: CYCLOPHOSPHAMIDE
     Indication: B-CELL LYMPHOMA
     Dosage: DATE OF MOST RECENT DOSE: 12/OCT/2016 AT 16:20
     Route: 042
     Dates: start: 20160922
  5. VALACICLOVIR [Concomitant]
     Active Substance: VALACYCLOVIR HYDROCHLORIDE
     Indication: INFECTION
     Route: 065
     Dates: start: 20160929, end: 20161031
  6. ARANESP [Concomitant]
     Active Substance: DARBEPOETIN ALFA
     Indication: ANAEMIA
     Route: 065
     Dates: start: 20161011
  7. VANCOMYCINE [Concomitant]
     Active Substance: VANCOMYCIN
     Indication: CLOSTRIDIUM COLITIS
     Route: 065
     Dates: start: 20161022, end: 20161030
  8. XYZALL [Concomitant]
     Active Substance: LEVOCETIRIZINE DIHYDROCHLORIDE
     Indication: PREMEDICATION
     Route: 065
     Dates: start: 20160922
  9. TRIATEC (FRANCE) [Concomitant]
     Active Substance: RAMIPRIL
     Indication: HYPERTENSION
     Route: 065
     Dates: start: 2006
  10. ZARZIO [Concomitant]
     Active Substance: FILGRASTIM
     Route: 065
     Dates: start: 20161018, end: 20161022
  11. FILGRASTIM [Concomitant]
     Active Substance: FILGRASTIM
     Indication: NEUTROPENIA
     Route: 065
     Dates: start: 20161021, end: 20161022
  12. FLAGYL [Concomitant]
     Active Substance: METRONIDAZOLE\METRONIDAZOLE HYDROCHLORIDE
     Indication: CLOSTRIDIUM COLITIS
     Route: 065
     Dates: start: 20161022, end: 20161030
  13. ALPRAZOLAM. [Concomitant]
     Active Substance: ALPRAZOLAM
     Indication: ANXIETY
     Route: 065
     Dates: start: 20160922, end: 20161011
  14. ZARZIO [Concomitant]
     Active Substance: FILGRASTIM
     Indication: NEUTROPENIA
     Route: 065
     Dates: start: 20160930, end: 20161006
  15. RITUXIMAB [Suspect]
     Active Substance: RITUXIMAB
     Indication: B-CELL LYMPHOMA
     Dosage: DATE OF MOST RECENT DOSE 750 MG: 12/OCT/2016 AT 12:00
     Route: 042
     Dates: start: 20160922
  16. LODOZ [Concomitant]
     Active Substance: BISOPROLOL FUMARATE\HYDROCHLOROTHIAZIDE
     Indication: HYPERTENSION
     Route: 065
     Dates: start: 2016
  17. LEDERFOLINE [Concomitant]
     Active Substance: LEUCOVORIN CALCIUM
     Indication: ANAEMIA
     Route: 065
     Dates: start: 20160922, end: 20161031
  18. VINCRISTINE [Suspect]
     Active Substance: VINCRISTINE
     Indication: B-CELL LYMPHOMA
     Dosage: DATE OF MOST RECENT DOSE 2 MG: 12/OCT/2016 AT 15:05
     Route: 042
     Dates: start: 20160922
  19. PREDNISONE. [Suspect]
     Active Substance: PREDNISONE
     Indication: B-CELL LYMPHOMA
     Dosage: DOSED ON DAYS 1 THROUGH 5 OF EACH CYCLE?DATE OF MOST RECENT DOSE: 16/OCT/2016 AT 100MG
     Route: 048
     Dates: start: 20160922
  20. BACTRIM [Concomitant]
     Active Substance: SULFAMETHOXAZOLE\TRIMETHOPRIM
     Indication: INFECTION
     Route: 065
     Dates: start: 20160929, end: 20161031
  21. DOXORUBICIN [Suspect]
     Active Substance: DOXORUBICIN
     Indication: B-CELL LYMPHOMA
     Dosage: DATE OF MOST RECENT DOSE 100 MG: 12/OCT/2016 AT 16:00
     Route: 042
     Dates: start: 20160922
  22. DAFALGAN [Concomitant]
     Active Substance: ACETAMINOPHEN
     Indication: PREMEDICATION
     Route: 065
     Dates: start: 20160922
  23. FORLAX [Concomitant]
     Active Substance: POLYETHYLENE GLYCOL 4000
     Indication: CONSTIPATION
     Route: 065
     Dates: start: 20160924, end: 20161011
  24. RED BLOOD CELLS [Concomitant]
     Active Substance: HUMAN RED BLOOD CELL
     Indication: ANAEMIA
     Route: 065
     Dates: start: 20161026, end: 20161026

REACTIONS (1)
  - Clostridium colitis [Recovered/Resolved]

NARRATIVE: CASE EVENT DATE: 20161021
